FAERS Safety Report 7089920-X (Version None)
Quarter: 2010Q4

REPORT INFORMATION
  Report Type: 
  Country: None (occurrence: None)
  Receive Date: 20101108
  Receipt Date: 20101104
  Transmission Date: 20110411
  Serious: Yes (Life-Threatening, Hospitalization, Disabling, Other)
  Sender: FDA-Public Use
  Company Number: GB-AMGEN-QUU421037

PATIENT

DRUGS (7)
  1. NEULASTA [Suspect]
     Indication: CHEMOTHERAPY
     Dosage: 6 MG, UNK
     Route: 058
     Dates: start: 20100617, end: 20100617
  2. RITUXIMAB [Concomitant]
  3. CYCLOPHOSPHAMIDE [Concomitant]
  4. DOXORUBICIN HYDROCHLORIDE [Concomitant]
  5. VINCRISTINE SULFATE [Concomitant]
  6. PREDNISONE [Concomitant]
  7. ANTINEOPLASTIC AGENTS [Concomitant]

REACTIONS (3)
  - CEREBROVASCULAR ACCIDENT [None]
  - NEUTROPHIL COUNT INCREASED [None]
  - WHITE BLOOD CELL COUNT INCREASED [None]
